FAERS Safety Report 10537057 (Version 1)
Quarter: 2014Q4

REPORT INFORMATION
  Report Type: Spontaneous
  Country: US (occurrence: US)
  Receive Date: 20141022
  Receipt Date: 20141022
  Transmission Date: 20150529
  Serious: No
  Sender: FDA-Public Use
  Company Number: US-GILEAD-2014-0119487

PATIENT
  Age: 70 Year
  Sex: Female

DRUGS (14)
  1. REMODULIN [Concomitant]
     Active Substance: TREPROSTINIL
  2. FUROSEMIDE. [Concomitant]
     Active Substance: FUROSEMIDE
  3. PENTOXYFYLLINE [Concomitant]
  4. DOXYCYCLINE. [Suspect]
     Active Substance: DOXYCYCLINE
  5. TYLENOL [Concomitant]
     Active Substance: ACETAMINOPHEN
  6. WARFARIN [Concomitant]
     Active Substance: WARFARIN
  7. FAMOTIDINE. [Concomitant]
     Active Substance: FAMOTIDINE
  8. SYNTHROID [Concomitant]
     Active Substance: LEVOTHYROXINE SODIUM
  9. BUPROPION [Concomitant]
     Active Substance: BUPROPION
  10. ZYRTEC [Concomitant]
     Active Substance: CETIRIZINE HYDROCHLORIDE
  11. LETAIRIS [Suspect]
     Active Substance: AMBRISENTAN
     Indication: PULMONARY ARTERIAL HYPERTENSION
     Dosage: 5 MG, QD
     Route: 065
     Dates: start: 20140923
  12. OMEPRAZOLE. [Concomitant]
     Active Substance: OMEPRAZOLE
  13. LOPERAMIDE [Concomitant]
     Active Substance: LOPERAMIDE
  14. MIRTAZEPINE TEVA [Concomitant]
     Active Substance: MIRTAZAPINE

REACTIONS (1)
  - Vomiting [Recovered/Resolved]

NARRATIVE: CASE EVENT DATE: 20140924
